FAERS Safety Report 8564633-3 (Version None)
Quarter: 2012Q3

REPORT INFORMATION
  Report Type: 
  Country: None (occurrence: None)
  Receive Date: 20120803
  Receipt Date: 19870311
  Transmission Date: 20120928
  Serious: Yes (Hospitalization, Other)
  Sender: FDA-Public Use
  Company Number: GB-009507513-87030522

PATIENT

DRUGS (2)
  1. ELAVIL [Suspect]
     Indication: OVERDOSE
     Dosage: 2125 MG, UNK
     Route: 048
  2. CHLORPROMAZINE HCL [Concomitant]
     Indication: OVERDOSE
     Dosage: 2500 MG, UNK
     Route: 048

REACTIONS (3)
  - SUICIDE ATTEMPT [None]
  - FAECALOMA [None]
  - OVERDOSE [None]
